FAERS Safety Report 10561290 (Version 2)
Quarter: 2015Q1

REPORT INFORMATION
  Report Type: Not Available
  Country: AT (occurrence: AT)
  Receive Date: 20141103
  Receipt Date: 20150105
  Transmission Date: 20150720
  Serious: Yes (Other)
  Sender: FDA-Public Use
  Company Number: AT-PURDUE-DEU-2014-0015598

PATIENT
  Age: 52 Year
  Sex: Female

DRUGS (14)
  1. HYDAL RETARD KAPSELN [Suspect]
     Active Substance: HYDROMORPHONE HYDROCHLORIDE
     Indication: PRODUCT USED FOR UNKNOWN INDICATION
     Dosage: 8 MG, UNK
     Route: 048
     Dates: start: 20140203, end: 20140213
  2. SEROQUEL [Suspect]
     Active Substance: QUETIAPINE FUMARATE
     Dosage: 100 MG, UNK
     Route: 048
     Dates: start: 20140203, end: 20140205
  3. LYRICA [Suspect]
     Active Substance: PREGABALIN
     Dosage: 200 MG, UNK
     Route: 048
     Dates: start: 20140203, end: 20140205
  4. RIVOTRIL [Suspect]
     Active Substance: CLONAZEPAM
     Indication: PRODUCT USED FOR UNKNOWN INDICATION
     Dosage: 2.5 MG, UNK
     Route: 048
     Dates: start: 20140203, end: 20140214
  5. DEPAKINE CHRONO [Suspect]
     Active Substance: VALPROATE SODIUM
     Dosage: 1500 MG, UNK
     Route: 048
     Dates: start: 20140205, end: 20140209
  6. LYRICA [Suspect]
     Active Substance: PREGABALIN
     Indication: PRODUCT USED FOR UNKNOWN INDICATION
     Dosage: 200 MG, UNK
     Route: 048
     Dates: start: 20140214, end: 20140218
  7. LYRICA [Suspect]
     Active Substance: PREGABALIN
     Dosage: 400 MG, UNK
     Route: 048
     Dates: start: 20140205, end: 20140213
  8. SEROQUEL [Suspect]
     Active Substance: QUETIAPINE FUMARATE
     Indication: PRODUCT USED FOR UNKNOWN INDICATION
     Dosage: 250 MG, UNK
     Route: 048
     Dates: start: 20140205, end: 20140211
  9. SAROTEN [Suspect]
     Active Substance: AMITRIPTYLINE
     Dosage: 100 MG, UNK
     Route: 048
     Dates: start: 20140205, end: 20140213
  10. DEPAKINE CHRONO [Suspect]
     Active Substance: VALPROATE SODIUM
     Dosage: 2000 MG, UNK
     Route: 048
     Dates: start: 20140209, end: 20140214
  11. SAROTEN [Suspect]
     Active Substance: AMITRIPTYLINE
     Indication: PRODUCT USED FOR UNKNOWN INDICATION
     Dosage: 50 MG, UNK
     Route: 048
     Dates: start: 20140213, end: 20140215
  12. DEPAKINE CHRONO [Suspect]
     Active Substance: VALPROATE SODIUM
     Dosage: 1000 MG, UNK
     Route: 048
     Dates: start: 20140203, end: 20140205
  13. DEPAKINE CHRONO [Suspect]
     Active Substance: VALPROATE SODIUM
     Indication: PRODUCT USED FOR UNKNOWN INDICATION
     Dosage: 1000 MG, UNK
     Route: 048
     Dates: start: 20140214, end: 20140218
  14. SAROTEN [Suspect]
     Active Substance: AMITRIPTYLINE
     Dosage: 50 MG, UNK
     Route: 048
     Dates: start: 20140203, end: 20140205

REACTIONS (1)
  - Delirium [Recovered/Resolved]

NARRATIVE: CASE EVENT DATE: 20140209
